FAERS Safety Report 15426285 (Version 1)
Quarter: 2018Q3

REPORT INFORMATION
  Report Type: Spontaneous
  Country: US (occurrence: US)
  Receive Date: 20180925
  Receipt Date: 20180925
  Transmission Date: 20181010
  Serious: No
  Sender: FDA-Public Use
  Company Number: US-INDIVIOR LIMITED-INDV-104208-2017

PATIENT
  Age: 29 Year
  Sex: Male

DRUGS (1)
  1. SUBOXONE [Suspect]
     Active Substance: BUPRENORPHINE HYDROCHLORIDE\NALOXONE HYDROCHLORIDE
     Indication: DRUG DEPENDENCE
     Dosage: 6 MG DAILY, BY CUTTING
     Route: 060
     Dates: start: 20170602, end: 20170822

REACTIONS (5)
  - Product use issue [Recovered/Resolved]
  - Pain [Not Recovered/Not Resolved]
  - Product preparation error [Recovered/Resolved]
  - Fall [Recovered/Resolved]
  - Ligament sprain [Not Recovered/Not Resolved]

NARRATIVE: CASE EVENT DATE: 20170602
